FAERS Safety Report 23267193 (Version 1)
Quarter: 2023Q4

REPORT INFORMATION
  Report Type: Spontaneous
  Country: RO (occurrence: RO)
  Receive Date: 20231206
  Receipt Date: 20231206
  Transmission Date: 20240110
  Serious: Yes (Other)
  Sender: FDA-Public Use
  Company Number: RO-ROCHE-3463737

PATIENT
  Age: 61 Year
  Sex: Female

DRUGS (6)
  1. CARBOPLATIN [Suspect]
     Active Substance: CARBOPLATIN
     Indication: Product used for unknown indication
     Route: 065
     Dates: start: 202104, end: 202108
  2. DOCETAXEL [Suspect]
     Active Substance: DOCETAXEL\DOCETAXEL ANHYDROUS
     Indication: Product used for unknown indication
     Route: 065
     Dates: start: 202104, end: 202108
  3. TRASTUZUMAB [Suspect]
     Active Substance: TRASTUZUMAB
     Indication: Product used for unknown indication
     Dosage: ROA - UNKNOWN
     Dates: start: 202104, end: 202108
  4. PERTUZUMAB [Suspect]
     Active Substance: PERTUZUMAB
     Indication: Product used for unknown indication
     Dosage: FOA - INTRAVENOUS INFUSION?ROA - UNKNOWN
     Dates: start: 202104, end: 202108
  5. LETROZOLE [Suspect]
     Active Substance: LETROZOLE
     Indication: Product used for unknown indication
     Dosage: ROA - UNKNOWN
  6. KADCYLA [Suspect]
     Active Substance: ADO-TRASTUZUMAB EMTANSINE
     Indication: Product used for unknown indication
     Dosage: FOA - INTRAVENOUS INFUSION?ROA - UNKNOWN
     Dates: start: 202111, end: 202208

REACTIONS (3)
  - Radiation skin injury [Unknown]
  - Thrombocytopenia [Unknown]
  - Oesophagitis [Unknown]
